FAERS Safety Report 14324097 (Version 1)
Quarter: 2017Q4

REPORT INFORMATION
  Report Type: Spontaneous
  Country: US (occurrence: US)
  Receive Date: 20171222
  Receipt Date: 20171222
  Transmission Date: 20180321
  Serious: Yes (Hospitalization)
  Sender: FDA-Public Use
  Company Number: None

PATIENT
  Age: 61 Year
  Sex: Male

DRUGS (26)
  1. MULTIVITAMIN [Concomitant]
     Active Substance: VITAMINS
  2. FLUVIRIN NOS [Concomitant]
     Active Substance: INFLUENZA VIRUS VACCINE
  3. SYNTHROID [Concomitant]
     Active Substance: LEVOTHYROXINE SODIUM
  4. CLINDAMYCIN. [Concomitant]
     Active Substance: CLINDAMYCIN
  5. ENALAPRIL [Concomitant]
     Active Substance: ENALAPRIL
  6. FISH OIL [Concomitant]
     Active Substance: FISH OIL
  7. SIMVASTATIN. [Concomitant]
     Active Substance: SIMVASTATIN
  8. ISOSORBIDE MONO [Concomitant]
  9. CLOPIDOGREL [Concomitant]
     Active Substance: CLOPIDOGREL BISULFATE
  10. SPIRONOLACTONE. [Concomitant]
     Active Substance: SPIRONOLACTONE
  11. CIPRODEX [Concomitant]
     Active Substance: CIPROFLOXACIN HYDROCHLORIDE\DEXAMETHASONE
  12. DOXYCYCLINE. [Concomitant]
     Active Substance: DOXYCYCLINE
  13. ODEFSEY [Suspect]
     Active Substance: EMTRICITABINE\RILPIVIRINE HYDROCHLORIDE\TENOFOVIR ALAFENAMIDE FUMARATE
     Indication: HIV INFECTION
     Route: 048
     Dates: start: 20160924
  14. FLONASE [Concomitant]
     Active Substance: FLUTICASONE PROPIONATE
  15. PROVENTIL [Concomitant]
     Active Substance: ALBUTEROL
  16. ASPRIN [Concomitant]
     Active Substance: ASPIRIN
  17. POT CL MICRO [Concomitant]
  18. PREDNISONE. [Concomitant]
     Active Substance: PREDNISONE
  19. LEVOTHYROXINE. [Concomitant]
     Active Substance: LEVOTHYROXINE
  20. VITAMIN E [Concomitant]
     Active Substance: .ALPHA.-TOCOPHEROL
  21. NEO/POLY/HC (HYDROCORTISONE, NEOMYCIN, POLYMYXIN B, BACITRACIN ZINC OTIC) [Concomitant]
  22. FOLIC ACID. [Concomitant]
     Active Substance: FOLIC ACID
  23. ATORVASTATIN [Concomitant]
     Active Substance: ATORVASTATIN
  24. BUMETANIDE. [Concomitant]
     Active Substance: BUMETANIDE
  25. RANITIDINE. [Concomitant]
     Active Substance: RANITIDINE
  26. FENOFIBRATE. [Concomitant]
     Active Substance: FENOFIBRATE

REACTIONS (3)
  - Haemorrhage [None]
  - Blood pressure decreased [None]
  - Anaemia [None]

NARRATIVE: CASE EVENT DATE: 20171214
